FAERS Safety Report 7798831-3 (Version None)
Quarter: 2011Q4

REPORT INFORMATION
  Report Type: 
  Country: None (occurrence: None)
  Receive Date: 20111006
  Receipt Date: 20110926
  Transmission Date: 20120403
  Serious: Yes (Other)
  Sender: FDA-Public Use
  Company Number: CA-JNJFOC-20110911391

PATIENT
  Sex: Female
  Weight: 75 kg

DRUGS (7)
  1. EFFEXOR [Concomitant]
     Route: 065
  2. REMICADE [Suspect]
     Indication: PSORIATIC ARTHROPATHY
     Route: 042
     Dates: start: 20070530
  3. NSAIDS [Concomitant]
     Route: 065
  4. METHOTREXATE [Concomitant]
     Route: 065
  5. PREXIGE [Concomitant]
     Route: 065
  6. THYROXIN T3 [Concomitant]
     Route: 065
  7. SULFASALAZINE [Concomitant]
     Route: 065

REACTIONS (1)
  - ENDODONTIC PROCEDURE [None]
